FAERS Safety Report 13375873 (Version 1)
Quarter: 2017Q1

REPORT INFORMATION
  Report Type: Spontaneous
  Country: US (occurrence: US)
  Receive Date: 20170328
  Receipt Date: 20170328
  Transmission Date: 20170429
  Serious: No
  Sender: FDA-Public Use
  Company Number: US-ASTRAZENECA-2017SE31096

PATIENT
  Age: 26573 Day
  Sex: Male
  Weight: 70.3 kg

DRUGS (3)
  1. BYDUREON [Suspect]
     Active Substance: EXENATIDE
     Indication: BLOOD GLUCOSE INCREASED
     Route: 058
  2. METFORMIN [Concomitant]
     Active Substance: METFORMIN HYDROCHLORIDE
     Indication: BLOOD GLUCOSE INCREASED
     Dosage: 500MG AS NEEDED, A HALF A TAB FROM THE 1000 MG TAB, STARTED TAKING 12 YEARS AGO
     Route: 048
  3. LANTUS [Concomitant]
     Active Substance: INSULIN GLARGINE
     Indication: BLOOD GLUCOSE INCREASED
     Dosage: TOOK SIX INSULIN SHOTS A DAY BEFORE STARTING THE BYDUREON
     Route: 058

REACTIONS (3)
  - Drug administration error [Unknown]
  - Injection site mass [Unknown]
  - Device issue [Unknown]
